FAERS Safety Report 4972784-5 (Version None)
Quarter: 2006Q2

REPORT INFORMATION
  Report Type: 
  Country: None (occurrence: None)
  Receive Date: 20060410
  Receipt Date: 20060329
  Transmission Date: 20061013
  Serious: Yes (Hospitalization)
  Sender: FDA-Public Use
  Company Number: CERZ-11186

PATIENT
  Age: 40 Year
  Sex: Female
  Weight: 65 kg

DRUGS (1)
  1. CEREZYME [Suspect]
     Indication: GAUCHER'S DISEASE
     Dosage: 4000 UNITS Q2WKS IV
     Route: 042
     Dates: start: 19970630

REACTIONS (2)
  - BONE GRAFT [None]
  - DEVICE FAILURE [None]
